FAERS Safety Report 9187333 (Version 1)
Quarter: 2013Q1

REPORT INFORMATION
  Report Type: Spontaneous
  Country: AT (occurrence: AT)
  Receive Date: 20130325
  Receipt Date: 20130325
  Transmission Date: 20140127
  Serious: Yes (Other)
  Sender: FDA-Public Use
  Company Number: AT-UCBSA-081360

PATIENT
  Age: 79 Year
  Sex: Female

DRUGS (3)
  1. KEPPRA [Suspect]
     Indication: STATUS EPILEPTICUS
     Route: 040
  2. VIMPAT [Suspect]
     Indication: STATUS EPILEPTICUS
     Route: 040
  3. TEMESTA [Concomitant]
     Dosage: 2 DOSES OF 2 MG
     Route: 042

REACTIONS (1)
  - Respiratory disorder [Unknown]
